FAERS Safety Report 17867640 (Version 1)
Quarter: 2020Q2

REPORT INFORMATION
  Report Type: Spontaneous
  Country: DE (occurrence: DE)
  Receive Date: 20200605
  Receipt Date: 20200605
  Transmission Date: 20200714
  Serious: Yes (Hospitalization)
  Sender: FDA-Public Use
  Company Number: DE-NOVOPROD-730819

PATIENT
  Age: 7 Year
  Sex: Female
  Weight: 29.5 kg

DRUGS (1)
  1. NORDITROPIN [Suspect]
     Active Substance: SOMATROPIN
     Indication: TURNER^S SYNDROME
     Dosage: UNK, 1X/DAY
     Route: 058
     Dates: start: 20170220, end: 20190614

REACTIONS (3)
  - Idiopathic intracranial hypertension [Recovering/Resolving]
  - Papilloedema [Recovering/Resolving]
  - Headache [Recovering/Resolving]

NARRATIVE: CASE EVENT DATE: 20170220
